FAERS Safety Report 7086296-9 (Version None)
Quarter: 2010Q4

REPORT INFORMATION
  Report Type: 
  Country: None (occurrence: None)
  Receive Date: 20101105
  Receipt Date: 20101027
  Transmission Date: 20110411
  Serious: Yes (Other)
  Sender: FDA-Public Use
  Company Number: JP-MERCK-1011USA00244

PATIENT
  Age: 75 Year
  Sex: Female

DRUGS (8)
  1. SINGULAIR [Suspect]
     Indication: NASOPHARYNGITIS
     Route: 048
  2. GENINAX [Suspect]
     Indication: NASOPHARYNGITIS
     Route: 048
  3. CALONAL [Suspect]
     Route: 048
  4. CONIEL [Suspect]
     Route: 048
  5. EBRANTIL [Suspect]
     Route: 048
  6. DIOVAN [Suspect]
     Route: 048
  7. PAXIL [Suspect]
     Route: 048
  8. PEPCID [Suspect]
     Route: 048

REACTIONS (6)
  - AGGRESSION [None]
  - DELUSION [None]
  - DEMENTIA [None]
  - DISEASE PROGRESSION [None]
  - HALLUCINATION [None]
  - OFF LABEL USE [None]
